FAERS Safety Report 25215219 (Version 3)
Quarter: 2025Q4

REPORT INFORMATION
  Report Type: Spontaneous
  Country: US (occurrence: US)
  Receive Date: 20250418
  Receipt Date: 20251106
  Transmission Date: 20260118
  Serious: No
  Sender: PFIZER
  Company Number: US-PFIZER INC-202500078260

PATIENT
  Age: 66 Year
  Sex: Female

DRUGS (2)
  1. IBRANCE [Suspect]
     Active Substance: PALBOCICLIB
     Dosage: 125 MG, CYCLIC (1 TABLET ONCE DAILY FOR 21 DAYS ON THEN 7 DAYS OFF TAKE WITH OR WITHOUT FOOD)
     Route: 048
  2. DAKINS FULL [Suspect]
     Active Substance: SODIUM HYPOCHLORITE
     Dosage: UNK

REACTIONS (4)
  - White blood cell count decreased [Unknown]
  - Impaired healing [Unknown]
  - Limb injury [Not Recovered/Not Resolved]
  - Skin burning sensation [Unknown]
